FAERS Safety Report 8242628-7 (Version None)
Quarter: 2012Q1

REPORT INFORMATION
  Report Type: 
  Country: None (occurrence: None)
  Receive Date: 20120329
  Receipt Date: 20120320
  Transmission Date: 20120608
  Serious: Yes (Death, Hospitalization)
  Sender: FDA-Public Use
  Company Number: PHHY2011US57685

PATIENT
  Sex: Male
  Weight: 65.63 kg

DRUGS (19)
  1. ASPIRIN [Concomitant]
     Dosage: 81 MG, QD
     Dates: start: 20100318, end: 20120228
  2. MULTIPLE VITAMINS [Concomitant]
     Indication: NAUSEA
     Dosage: 01 DF, QD
     Route: 048
     Dates: start: 20110412, end: 20120228
  3. NITROGLYCERIN [Concomitant]
     Indication: NAUSEA
     Dosage: 0.4 MG, UNK
     Dates: start: 20100318, end: 20120228
  4. VENTOLIN [Concomitant]
     Indication: NAUSEA
     Dates: start: 20100318, end: 20120228
  5. ALENDRONATE SODIUM [Concomitant]
     Dosage: 70 MG, UNK
     Dates: start: 20111025, end: 20120228
  6. LIDODERM [Concomitant]
     Indication: NAUSEA
     Dosage: 700 MG, UNK
     Dates: start: 20110830, end: 20120228
  7. SPIRIVA [Concomitant]
     Indication: NAUSEA
     Dosage: 01 DF, QD
     Dates: start: 20100318, end: 20120228
  8. PANTOPRAZOLE [Concomitant]
     Indication: NAUSEA
     Dosage: 20 MG, QD
     Route: 048
     Dates: start: 20101126, end: 20120228
  9. COMPAZINE [Concomitant]
     Indication: NAUSEA
     Dosage: 10 MG, UNK
     Dates: end: 20120228
  10. VOLTAREN [Concomitant]
     Indication: NAUSEA
     Dosage: 100 MG, UNK
     Dates: start: 20120224, end: 20120228
  11. ADVAIR DISKUS 100/50 [Concomitant]
     Dosage: 01 DF, BID
     Dates: start: 20100318, end: 20120228
  12. LASIX [Concomitant]
     Indication: NAUSEA
     Dosage: 20 MG, UNK
     Route: 048
     Dates: end: 20120228
  13. EXJADE [Suspect]
     Indication: IRON OVERLOAD
     Dosage: 1000 MG, DAILY
     Route: 048
     Dates: start: 20101124, end: 20120228
  14. PREDNISONE TAB [Concomitant]
     Indication: NAUSEA
     Dosage: 20 MG, BID
     Route: 048
     Dates: start: 20120103, end: 20120228
  15. GUAIFENESIN [Concomitant]
     Indication: NAUSEA
     Dosage: 10 ML, UNK
     Dates: start: 20110412, end: 20120228
  16. BENZONATATE [Concomitant]
     Dosage: 100 MG, QD
     Dates: end: 20120228
  17. DOCUSATE SODIUM [Concomitant]
     Indication: NAUSEA
     Dosage: 100 MG, BID
     Dates: end: 20120228
  18. METOPROLOL TARTRATE [Concomitant]
     Indication: NAUSEA
     Dosage: 250 MG, BID
     Dates: start: 20100318, end: 20120228
  19. XALATAN [Concomitant]
     Indication: NAUSEA
     Dosage: 0.005 %, UNK
     Dates: start: 20100621, end: 20120228

REACTIONS (16)
  - WHITE BLOOD CELL COUNT INCREASED [None]
  - MONOCYTE COUNT DECREASED [None]
  - RED BLOOD CELL COUNT DECREASED [None]
  - CHRONIC OBSTRUCTIVE PULMONARY DISEASE [None]
  - OESOPHAGEAL ACHALASIA [None]
  - HAEMATOCRIT DECREASED [None]
  - PNEUMONIA [None]
  - INTERSTITIAL LUNG DISEASE [None]
  - BRONCHITIS [None]
  - THROMBOSIS [None]
  - MEAN CELL VOLUME INCREASED [None]
  - HAEMOGLOBIN DECREASED [None]
  - PLATELET COUNT DECREASED [None]
  - LYMPHOCYTE COUNT DECREASED [None]
  - RED CELL DISTRIBUTION WIDTH INCREASED [None]
  - GLOMERULAR FILTRATION RATE DECREASED [None]
